FAERS Safety Report 9370052 (Version 3)
Quarter: 2013Q4

REPORT INFORMATION
  Report Type: Spontaneous
  Country: US (occurrence: US)
  Receive Date: 20130626
  Receipt Date: 20131202
  Transmission Date: 20140711
  Serious: Yes (Other)
  Sender: FDA-Public Use
  Company Number: US-PFIZER INC-2013190711

PATIENT
  Age: 60 Year
  Sex: Female
  Weight: 58.96 kg

DRUGS (11)
  1. LYRICA [Suspect]
     Indication: NEUROPATHY PERIPHERAL
     Dosage: 300 MG, 2X/DAY
     Route: 048
     Dates: start: 20081113
  2. LYRICA [Suspect]
     Indication: PAIN
  3. LYRICA [Suspect]
     Indication: PHANTOM PAIN
  4. MORPHINE [Concomitant]
     Indication: PAIN
     Dosage: UNK, 1X/DAY
  5. HYDROCODONE [Concomitant]
     Indication: PAIN
     Dosage: UNK, 1X/DAY
  6. MS CONTIN [Concomitant]
     Dosage: 60 MG, 3X/DAY
  7. CYMBALTA [Concomitant]
     Dosage: 60 MG, DAILY
  8. AMBIEN [Concomitant]
     Dosage: 10 MG, QHS (1X/DAY)
  9. COUMADIN [Concomitant]
     Dosage: 5 MG, DAILY
  10. DIGOXIN [Concomitant]
     Dosage: 0.25 MG, DAILY
  11. KEPPRA [Concomitant]
     Dosage: 500 MG, 3X/DAY

REACTIONS (2)
  - Staphylococcal infection [Unknown]
  - Osteomyelitis [Recovered/Resolved]
